FAERS Safety Report 18693059 (Version 1)
Quarter: 2021Q1

REPORT INFORMATION
  Report Type: Spontaneous
  Country: US (occurrence: US)
  Receive Date: 20210104
  Receipt Date: 20210104
  Transmission Date: 20210419
  Serious: Yes (Other)
  Sender: FDA-Public Use
  Company Number: US-SA-2020SA369324

PATIENT

DRUGS (4)
  1. PLAVIX [Suspect]
     Active Substance: CLOPIDOGREL BISULFATE
     Indication: PROPHYLAXIS
     Dosage: 75 MG, QD
     Dates: start: 2005
  2. PHENOBARBITAL. [Concomitant]
     Active Substance: PHENOBARBITAL
     Indication: SEIZURE
     Dosage: 64.8 MG, Q4H
     Dates: start: 1997
  3. ATORVASTATIN CALCIUM. [Suspect]
     Active Substance: ATORVASTATIN CALCIUM
     Indication: THROMBOSIS PROPHYLAXIS
     Dosage: 80 MG, HS, AT NIGHT
     Dates: start: 2003, end: 202001
  4. NEURONTIN [Concomitant]
     Active Substance: GABAPENTIN
     Indication: SEIZURE
     Dosage: 300 MG, Q4H
     Dates: start: 1997

REACTIONS (6)
  - Photosensitivity reaction [Unknown]
  - Brain stem thrombosis [Unknown]
  - Therapy cessation [Unknown]
  - Cerebrovascular accident [Unknown]
  - Coma [Unknown]
  - Product use in unapproved indication [Unknown]

NARRATIVE: CASE EVENT DATE: 2003
